FAERS Safety Report 16703893 (Version 1)
Quarter: 2019Q3

REPORT INFORMATION
  Report Type: Spontaneous
  Country: FR (occurrence: FR)
  Receive Date: 20190814
  Receipt Date: 20190814
  Transmission Date: 20191004
  Serious: Yes (Hospitalization)
  Sender: FDA-Public Use
  Company Number: FR-TEVA-2019-FR-1091184

PATIENT
  Age: 91 Year
  Sex: Female
  Weight: 47.6 kg

DRUGS (5)
  1. LOXEN L P 50 MG, GELULE A LIBERATION PROLONGEE [Suspect]
     Active Substance: NICARDIPINE HYDROCHLORIDE
     Indication: HYPERTENSION
     Route: 048
     Dates: end: 20181029
  2. CANDESARTAN CILEXETIL. [Suspect]
     Active Substance: CANDESARTAN CILEXETIL
     Indication: HYPERTENSION
     Dosage: 8 MILLIGRAM
     Route: 048
  3. CHLORHYDRATE DE TRAMADOL [Suspect]
     Active Substance: TRAMADOL HYDROCHLORIDE
     Indication: PRODUCT USED FOR UNKNOWN INDICATION
     Route: 048
     Dates: end: 20181029
  4. CHLORHYDRATE DE BETAXOLOL [Suspect]
     Active Substance: BETAXOLOL HYDROCHLORIDE
     Indication: HYPERTENSION
     Dosage: 20 MILLIGRAM
     Route: 048
     Dates: end: 20181029
  5. DONORMYL (DOXYLAMINE SUCCINATE\SODIUM PHOSPHATE DIBASIC\SODIUM BROMIDE\SODIUM SULFATE) [Suspect]
     Active Substance: DOXYLAMINE\SODIUM BROMIDE\SODIUM PHOSPHATE, DIBASIC, ANHYDROUS\SODIUM SULFATE
     Indication: INSOMNIA
     Route: 048
     Dates: end: 20181028

REACTIONS (2)
  - Malaise [Recovered/Resolved]
  - Fall [Recovered/Resolved]

NARRATIVE: CASE EVENT DATE: 201810
